FAERS Safety Report 15740745 (Version 3)
Quarter: 2019Q1

REPORT INFORMATION
  Report Type: Report from Study
  Country: JP (occurrence: JP)
  Receive Date: 20181219
  Receipt Date: 20190326
  Transmission Date: 20190417
  Serious: Yes (Life-Threatening, Hospitalization, Other)
  Sender: FDA-Public Use
  Company Number: JP-ACTELION-A-CH2018-183799

PATIENT
  Age: 75 Year
  Sex: Female

DRUGS (15)
  1. SAMSCA [Concomitant]
     Active Substance: TOLVAPTAN
     Indication: PLEURAL EFFUSION
  2. POTASSIUM CHLORIDE. [Concomitant]
     Active Substance: POTASSIUM CHLORIDE
  3. OMEPRAZOLE. [Concomitant]
     Active Substance: OMEPRAZOLE
  4. NORADRENALINE [Concomitant]
     Active Substance: NOREPINEPHRINE
  5. OPSUMIT [Suspect]
     Active Substance: MACITENTAN
     Indication: PULMONARY ARTERIAL HYPERTENSION
     Dosage: 0.75 MG, QD
     Route: 048
     Dates: start: 20180805, end: 20180904
  6. PROCYLIN [Suspect]
     Active Substance: BERAPROST SODIUM
     Indication: PULMONARY ARTERIAL HYPERTENSION
     Route: 048
  7. ADEMPAS [Suspect]
     Active Substance: RIOCIGUAT
     Indication: PULMONARY ARTERIAL HYPERTENSION
     Dosage: 2.5 MG, TID
     Route: 048
  8. SAMSCA [Concomitant]
     Active Substance: TOLVAPTAN
     Indication: ATELECTASIS
  9. OXYGEN. [Concomitant]
     Active Substance: OXYGEN
  10. ASPARA POTASSIUM [Concomitant]
     Active Substance: POTASSIUM ASPARTATE
  11. SAMSCA [Concomitant]
     Active Substance: TOLVAPTAN
     Indication: BLOOD UREA INCREASED
  12. TAKECAB [Concomitant]
     Active Substance: VONOPRAZAN FUMURATE
  13. MOSAPRIDE CITRATE [Concomitant]
     Active Substance: MOSAPRIDE CITRATE
  14. MAGNESIUM OXIDE. [Concomitant]
     Active Substance: MAGNESIUM OXIDE
  15. DAIKENCHUTO [Concomitant]
     Active Substance: HERBALS

REACTIONS (16)
  - Intestinal obstruction [Recovered/Resolved]
  - Cardiac failure [Recovered/Resolved]
  - Atelectasis [Recovered/Resolved]
  - Pulmonary vein occlusion [Recovered/Resolved]
  - Pulmonary congestion [Recovered/Resolved]
  - Sepsis [Unknown]
  - Transfusion [Unknown]
  - Septic shock [Unknown]
  - Blood pressure decreased [Recovered/Resolved]
  - Blood urea increased [Recovered/Resolved]
  - Platelet count decreased [Recovered/Resolved]
  - Gastrostomy [Unknown]
  - Hypoxia [Recovered/Resolved]
  - Pleural effusion [Recovered/Resolved]
  - Pulmonary oedema [Recovered/Resolved]
  - Anaemia [Recovered/Resolved]

NARRATIVE: CASE EVENT DATE: 20180805
